FAERS Safety Report 20145669 (Version 4)
Quarter: 2022Q2

REPORT INFORMATION
  Report Type: Spontaneous
  Country: JP (occurrence: None)
  Receive Date: 20211203
  Receipt Date: 20220404
  Transmission Date: 20220721
  Serious: Yes (Hospitalization)
  Sender: FDA-Public Use
  Company Number: 2021A849496

PATIENT
  Age: 81 Year
  Sex: Male
  Weight: 59 kg

DRUGS (12)
  1. LOKELMA [Suspect]
     Active Substance: SODIUM ZIRCONIUM CYCLOSILICATE
     Indication: Hyperkalaemia
     Route: 048
     Dates: start: 20211028, end: 20211029
  2. LOKELMA [Suspect]
     Active Substance: SODIUM ZIRCONIUM CYCLOSILICATE
     Indication: Hyperkalaemia
     Route: 048
     Dates: start: 20211030, end: 20211107
  3. PREDONINE [Concomitant]
     Active Substance: PREDNISOLONE
     Indication: Chronic kidney disease
     Route: 048
     Dates: start: 20210525
  4. SULFAMETHOXAZOLE\TRIMETHOPRIM [Concomitant]
     Active Substance: SULFAMETHOXAZOLE\TRIMETHOPRIM
     Indication: Chronic kidney disease
     Route: 048
     Dates: start: 20210525
  5. BONALON [Concomitant]
     Active Substance: ALENDRONATE SODIUM
     Indication: Chronic kidney disease
     Route: 048
     Dates: start: 20210525
  6. LANSOPRAZOLE [Concomitant]
     Active Substance: LANSOPRAZOLE
     Indication: Chronic kidney disease
     Route: 048
     Dates: start: 20210514
  7. BENIDIPINE HYDROCHLORIDE [Concomitant]
     Active Substance: BENIDIPINE HYDROCHLORIDE
     Indication: Cardiac failure chronic
     Route: 048
     Dates: start: 20210322
  8. TELMISARTAN [Concomitant]
     Active Substance: TELMISARTAN
     Indication: Cardiac failure chronic
     Route: 048
     Dates: start: 20171023
  9. AZOSEMIDE [Concomitant]
     Active Substance: AZOSEMIDE
     Indication: Cardiac failure chronic
     Route: 048
     Dates: start: 20210514
  10. XARELTO OD [Concomitant]
     Indication: Atrial fibrillation
     Route: 048
     Dates: start: 20201214
  11. FEBUXOSTAT [Concomitant]
     Active Substance: FEBUXOSTAT
     Route: 048
     Dates: start: 20210614
  12. LEVOTHYROXINE [Concomitant]
     Active Substance: LEVOTHYROXINE
     Route: 048
     Dates: start: 20210614

REACTIONS (5)
  - Oedema [Unknown]
  - Cardiac failure [Recovering/Resolving]
  - Interstitial lung disease [Unknown]
  - Dyspnoea [Unknown]
  - Pleural effusion [Unknown]

NARRATIVE: CASE EVENT DATE: 20210101
